FAERS Safety Report 8128069-1 (Version None)
Quarter: 2012Q1

REPORT INFORMATION
  Report Type: 
  Country: None (occurrence: None)
  Receive Date: 20120210
  Receipt Date: 20120208
  Transmission Date: 20120608
  Serious: Yes (Hospitalization)
  Sender: FDA-Public Use
  Company Number: SE-PFIZER INC-2012033891

PATIENT
  Age: 81 Year
  Sex: Male

DRUGS (6)
  1. ARICEPT [Concomitant]
     Dosage: UNK
  2. FUROSEMIDE [Concomitant]
     Dosage: UNK
  3. CLINDAMYCIN HCL [Suspect]
     Indication: SKIN ULCER
     Dosage: UNK
     Route: 048
     Dates: start: 20111128
  4. WARFARIN SODIUM [Concomitant]
     Dosage: UNK
  5. SIMVASTATIN [Concomitant]
     Dosage: UNK
  6. CAPTOPRIL [Concomitant]
     Dosage: UNK

REACTIONS (1)
  - DIARRHOEA INFECTIOUS [None]
